FAERS Safety Report 25856132 (Version 1)
Quarter: 2025Q3

REPORT INFORMATION
  Report Type: Spontaneous
  Country: US (occurrence: US)
  Receive Date: 20250928
  Receipt Date: 20250928
  Transmission Date: 20251020
  Serious: No
  Sender: SANOFI AVENTIS
  Company Number: US-SA-2025SA288993

PATIENT
  Age: 52 Year
  Sex: Female

DRUGS (2)
  1. DUPIXENT [Suspect]
     Active Substance: DUPILUMAB
     Indication: Nasal polyps
     Dosage: 300 MG, QOW
     Route: 058
     Dates: start: 202306, end: 2025
  2. DUPIXENT [Suspect]
     Active Substance: DUPILUMAB
     Dosage: 300 MG, QOW, RESTARTED
     Route: 058
     Dates: start: 202505

REACTIONS (3)
  - Wheezing [Recovered/Resolved]
  - Asthma [Recovered/Resolved]
  - Anosmia [Unknown]

NARRATIVE: CASE EVENT DATE: 20250101
